FAERS Safety Report 6100067-9 (Version None)
Quarter: 2009Q1

REPORT INFORMATION
  Report Type: 
  Country: None (occurrence: None)
  Receive Date: 20090303
  Receipt Date: 20090227
  Transmission Date: 20090719
  Serious: Yes (Other)
  Sender: FDA-Public Use
  Company Number: B0562021A

PATIENT
  Age: 61 Year
  Sex: Male

DRUGS (1)
  1. ZOVIRAX [Suspect]
     Indication: DRUG USE FOR UNKNOWN INDICATION
     Dosage: 750MG THREE TIMES PER DAY
     Route: 042
     Dates: start: 20090220, end: 20090223

REACTIONS (1)
  - RENAL FUNCTION TEST ABNORMAL [None]
